FAERS Safety Report 7235810-9 (Version None)
Quarter: 2011Q1

REPORT INFORMATION
  Report Type: 
  Country: None (occurrence: None)
  Receive Date: 20110110
  Receipt Date: 20110104
  Transmission Date: 20110831
  Serious: Yes (Other)
  Sender: FDA-Public Use
  Company Number: 2010P1003388

PATIENT
  Age: 85 Year
  Sex: Female
  Weight: 54.4316 kg

DRUGS (4)
  1. LIPITOR [Concomitant]
  2. COLCHICINE [Suspect]
     Indication: CONSTIPATION
     Dosage: (0.6 MG; TID; PO) (0.6 MG; TID; PO)
     Route: 048
     Dates: start: 20030101, end: 20101201
  3. COLCHICINE [Suspect]
     Indication: CONSTIPATION
     Dosage: (0.6 MG; TID; PO) (0.6 MG; TID; PO)
     Route: 048
     Dates: start: 20101214
  4. CARDIZEM [Concomitant]

REACTIONS (6)
  - PAIN IN EXTREMITY [None]
  - INJURY [None]
  - HYPOAESTHESIA [None]
  - WRIST FRACTURE [None]
  - PARAESTHESIA [None]
  - CARPAL TUNNEL SYNDROME [None]
